FAERS Safety Report 8838966 (Version 1)
Quarter: 2012Q4

REPORT INFORMATION
  Report Type: Spontaneous
  Country: US (occurrence: None)
  Receive Date: 20121011
  Receipt Date: 20121011
  Transmission Date: 20130627
  Serious: No
  Sender: FDA-Public Use
  Company Number: None

PATIENT
  Sex: Female

DRUGS (1)
  1. FORTEO 20MCG LILLY [Suspect]
     Dosage: 20mcg Injectable daily
     Route: 058

REACTIONS (2)
  - Anxiety [None]
  - Insomnia [None]
